FAERS Safety Report 19315416 (Version 2)
Quarter: 2021Q2

REPORT INFORMATION
  Report Type: Spontaneous
  Country: US (occurrence: US)
  Receive Date: 20210527
  Receipt Date: 20210601
  Transmission Date: 20210717
  Serious: Yes (Other)
  Sender: FDA-Public Use
  Company Number: US-AMGEN INC.-USASP2021079449

PATIENT
  Age: 44 Year
  Sex: Female

DRUGS (1)
  1. AIMOVIG [Suspect]
     Active Substance: ERENUMAB-AOOE
     Indication: MIGRAINE PROPHYLAXIS
     Dosage: 140 MILLIGRAM
     Route: 065

REACTIONS (11)
  - Therapeutic response shortened [Unknown]
  - Foot fracture [Unknown]
  - Fall [Unknown]
  - Wrong technique in product usage process [Unknown]
  - Lower limb fracture [Unknown]
  - Pain [Not Recovered/Not Resolved]
  - Malaise [Not Recovered/Not Resolved]
  - Device difficult to use [Unknown]
  - Facial bones fracture [Unknown]
  - Foot deformity [Unknown]
  - Migraine [Unknown]

NARRATIVE: CASE EVENT DATE: 202105
